FAERS Safety Report 4834124-1 (Version None)
Quarter: 2005Q4

REPORT INFORMATION
  Report Type: 
  Country: None (occurrence: None)
  Receive Date: 20051122
  Receipt Date: 20051114
  Transmission Date: 20060501
  Serious: Yes (Death)
  Sender: FDA-Public Use
  Company Number: FR-BRISTOL-MYERS SQUIBB COMPANY-13181524

PATIENT
  Age: 36 Year
  Sex: Male
  Weight: 78 kg

DRUGS (5)
  1. ABILIFY [Suspect]
     Indication: PSYCHOTIC DISORDER
     Route: 048
     Dates: start: 20050618
  2. METHADONE HCL [Suspect]
     Indication: DRUG WITHDRAWAL SYNDROME
     Dates: start: 20050618
  3. XANAX [Suspect]
  4. NORSET [Concomitant]
     Indication: DEPRESSION
     Dates: start: 20050627, end: 20051005
  5. NOCTAMIDE [Concomitant]
     Indication: SLEEP DISORDER
     Dates: start: 20050627, end: 20051010

REACTIONS (1)
  - ASPIRATION [None]
